FAERS Safety Report 7009166-0 (Version None)
Quarter: 2010Q3

REPORT INFORMATION
  Report Type: 
  Country: None (occurrence: None)
  Receive Date: 20100922
  Receipt Date: 20100914
  Transmission Date: 20110219
  Serious: Yes (Other)
  Sender: FDA-Public Use
  Company Number: S07-USA-01069-01

PATIENT
  Age: 73 Year
  Sex: Female
  Weight: 81.65 kg

DRUGS (3)
  1. CELEXA [Suspect]
     Indication: DEPRESSION
     Dosage: 40 MG (40 MG,L IN 1 D), ORAL
     Route: 048
     Dates: start: 20020101
  2. HERBAL SUPPLEMENT (NOS)(HERBAL SUPPLEMENT (NOS)) (HERBAL SUPPLEMENT (N [Concomitant]
  3. NORCO (HYDROCODONE BITARTRATE, ACETAMINOPHEN)(TABLETS)(HYDROCODONE BIT [Concomitant]

REACTIONS (6)
  - ARTHRALGIA [None]
  - BACK PAIN [None]
  - INTERVERTEBRAL DISC COMPRESSION [None]
  - MYALGIA [None]
  - SPINAL COLUMN STENOSIS [None]
  - SURGICAL FAILURE [None]
